FAERS Safety Report 5843344-9 (Version None)
Quarter: 2008Q3

REPORT INFORMATION
  Report Type: 
  Country: None (occurrence: None)
  Receive Date: 20080813
  Receipt Date: 20080808
  Transmission Date: 20090109
  Serious: Yes (Hospitalization)
  Sender: FDA-Public Use
  Company Number: US-GILEAD-2008-0017713

PATIENT
  Sex: Male

DRUGS (7)
  1. LETAIRIS [Suspect]
     Indication: PULMONARY ARTERIAL HYPERTENSION
     Route: 048
     Dates: start: 20080723, end: 20080730
  2. LASIX [Concomitant]
     Route: 048
  3. ALTACE [Concomitant]
     Route: 048
  4. COREG [Concomitant]
     Route: 048
  5. DIGOXIN [Concomitant]
     Route: 048
  6. ASPIRIN [Concomitant]
     Route: 048
  7. AEROBID [Concomitant]
     Route: 055

REACTIONS (2)
  - HEART RATE DECREASED [None]
  - HYPOTENSION [None]
